FAERS Safety Report 13875438 (Version 1)
Quarter: 2017Q3

REPORT INFORMATION
  Report Type: Spontaneous
  Country: MX (occurrence: MX)
  Receive Date: 20170817
  Receipt Date: 20170817
  Transmission Date: 20171127
  Serious: Yes (Hospitalization, Other)
  Sender: FDA-Public Use
  Company Number: MX-AMGEN-MEXSP2017115938

PATIENT
  Age: 61 Year
  Sex: Female
  Weight: 130 kg

DRUGS (3)
  1. ALMETEC [Concomitant]
     Active Substance: OLMESARTAN MEDOXOMIL
     Indication: HYPERTENSION
     Dosage: 40 MG, QD
     Dates: start: 2001
  2. LEVOTHYROXINE. [Concomitant]
     Active Substance: LEVOTHYROXINE
     Dosage: 125 MUG, QD
     Dates: start: 2001
  3. PROLIA [Suspect]
     Active Substance: DENOSUMAB
     Indication: OSTEOPOROSIS POSTMENOPAUSAL
     Dosage: 60 MG, ONCE
     Route: 058
     Dates: start: 201706, end: 201706

REACTIONS (5)
  - Vitamin D decreased [Unknown]
  - Anaemia macrocytic [Unknown]
  - Hypocalcaemia [Not Recovered/Not Resolved]
  - Renal failure [Unknown]
  - Diarrhoea [Recovered/Resolved]

NARRATIVE: CASE EVENT DATE: 2017
